FAERS Safety Report 12816351 (Version 1)
Quarter: 2016Q4

REPORT INFORMATION
  Report Type: Spontaneous
  Country: CA (occurrence: CA)
  Receive Date: 20161006
  Receipt Date: 20161006
  Transmission Date: 20170207
  Serious: No
  Sender: FDA-Public Use
  Company Number: CA-NOVEN PHARMACEUTICALS, INC.-CA2016000061

PATIENT

DRUGS (2)
  1. ESTRADIOL/NORETHISTERONE ACETATE [Suspect]
     Active Substance: ESTRADIOL\NORETHINDRONE ACETATE
     Dosage: 140/50, UNK
     Route: 065
  2. ESTRADIOL/NORETHISTERONE ACETATE [Suspect]
     Active Substance: ESTRADIOL\NORETHINDRONE ACETATE
     Indication: MENOPAUSE
     Dosage: 250/50, UNKNOWN
     Route: 065

REACTIONS (8)
  - Back pain [Unknown]
  - Uterine pain [Unknown]
  - Burning sensation [Unknown]
  - Hot flush [Unknown]
  - Nervousness [Unknown]
  - Blister [Unknown]
  - Insomnia [Unknown]
  - Vaginal haemorrhage [Unknown]
